FAERS Safety Report 8950800 (Version 1)
Quarter: 2012Q4

REPORT INFORMATION
  Report Type: Spontaneous
  Country: US (occurrence: None)
  Receive Date: 20121207
  Receipt Date: 20121207
  Transmission Date: 20130627
  Serious: Yes (Life-Threatening, Hospitalization, Disabling, Other)
  Sender: FDA-Public Use
  Company Number: None

PATIENT
  Age: 58 Year
  Weight: 72.58 kg

DRUGS (2)
  1. STEROID INJECTION POSSIBLE METHYLPREDNISOLONE [Suspect]
     Indication: PAIN
  2. STEROID INJECTION POSSIBLE METHYLPREDNISOLONE [Suspect]
     Indication: NERVOUS SYSTEM DISORDER

REACTIONS (15)
  - Migraine [None]
  - Hypoaesthesia [None]
  - Urinary incontinence [None]
  - Faecal incontinence [None]
  - Movement disorder [None]
  - Vision blurred [None]
  - Malaise [None]
  - Retching [None]
  - Vomiting [None]
  - Tremor [None]
  - Fatigue [None]
  - Pain [None]
  - Activities of daily living impaired [None]
  - Burning sensation [None]
  - Nodule [None]
